FAERS Safety Report 5026791-7 (Version None)
Quarter: 2006Q2

REPORT INFORMATION
  Report Type: 
  Country: None (occurrence: None)
  Receive Date: 20060615
  Receipt Date: 20060606
  Transmission Date: 20061013
  Serious: Yes (Other)
  Sender: FDA-Public Use
  Company Number: 2006UW11634

PATIENT
  Age: 38 Year
  Sex: Female

DRUGS (2)
  1. SEROQUEL [Suspect]
     Dosage: 200 MG QAM + 600 MG QHS
     Route: 048
     Dates: start: 20040101
  2. RISPERDAL [Concomitant]

REACTIONS (1)
  - PITUITARY TUMOUR [None]
